FAERS Safety Report 4720825-2 (Version None)
Quarter: 2005Q3

REPORT INFORMATION
  Report Type: 
  Country: None (occurrence: None)
  Receive Date: 20050720
  Receipt Date: 20050512
  Transmission Date: 20060218
  Serious: Yes (Other)
  Sender: FDA-Public Use
  Company Number: 2005S1003487

PATIENT
  Age: 48 Year
  Sex: Female
  Weight: 65.7716 kg

DRUGS (4)
  1. FENTANYL [Suspect]
     Indication: PAIN
     Dosage: 50 MCG/HR; TDER
     Route: 062
     Dates: start: 20050228, end: 20050502
  2. THYROID TAB [Concomitant]
  3. OXYCODONE [Concomitant]
  4. GABAPENTIN [Concomitant]

REACTIONS (6)
  - ARTHRITIS [None]
  - BONE DISORDER [None]
  - DRUG EFFECT DECREASED [None]
  - NODULE [None]
  - OEDEMA PERIPHERAL [None]
  - PAIN [None]
